FAERS Safety Report 21218500 (Version 1)
Quarter: 2022Q3

REPORT INFORMATION
  Report Type: Spontaneous
  Country: US (occurrence: US)
  Receive Date: 20220816
  Receipt Date: 20220816
  Transmission Date: 20221026
  Serious: No
  Sender: FDA-Public Use
  Company Number: US-SA-SAC20220815000184

PATIENT
  Age: 54 Year
  Sex: Female

DRUGS (11)
  1. DUPIXENT [Suspect]
     Active Substance: DUPILUMAB
     Indication: Nasal polyps
     Dosage: 300 MG QOW
     Route: 058
     Dates: start: 20220623
  2. DUPIXENT [Suspect]
     Active Substance: DUPILUMAB
     Indication: Dermatitis atopic
  3. ZYRTEC [Concomitant]
     Active Substance: CETIRIZINE HYDROCHLORIDE
  4. VITAMIN A ACETATE [Concomitant]
     Active Substance: VITAMIN A ACETATE
  5. VITAMIN B12 [Concomitant]
     Active Substance: CYANOCOBALAMIN
  6. TACROLIMUS [Concomitant]
     Active Substance: TACROLIMUS
  7. BENADRYL ALLERGY [DIPHENHYDRAMINE HYDROCHLORIDE;PHENYLALANINE] [Concomitant]
  8. ROSUVASTATIN CALCIUM [Concomitant]
     Active Substance: ROSUVASTATIN CALCIUM
  9. VITAMIN C [Concomitant]
     Active Substance: ASCORBIC ACID
  10. TRIAMCINOLONE ACETONIDE [Concomitant]
     Active Substance: TRIAMCINOLONE ACETONIDE
  11. ALBUTEROL SULFATE [Concomitant]
     Active Substance: ALBUTEROL SULFATE

REACTIONS (9)
  - Dermatitis atopic [Unknown]
  - Erythema [Unknown]
  - Lip swelling [Unknown]
  - Pruritus [Unknown]
  - Lacrimation increased [Unknown]
  - Eyelids pruritus [Unknown]
  - Therapeutic response shortened [Unknown]
  - Product use in unapproved indication [Unknown]
  - Skin fissures [Unknown]

NARRATIVE: CASE EVENT DATE: 20220623
